FAERS Safety Report 7971265-4 (Version None)
Quarter: 2011Q4

REPORT INFORMATION
  Report Type: 
  Country: None (occurrence: None)
  Receive Date: 20111212
  Receipt Date: 20101227
  Transmission Date: 20120403
  Serious: Yes (Hospitalization)
  Sender: FDA-Public Use
  Company Number: US-BRISTOL-MYERS SQUIBB COMPANY-15461262

PATIENT
  Age: 81 Year
  Sex: Female

DRUGS (4)
  1. IXEMPRA KIT [Suspect]
     Dates: start: 20101216
  2. XELODA [Concomitant]
  3. AVASTIN [Concomitant]
  4. ZOMETA [Concomitant]

REACTIONS (6)
  - STOMATITIS [None]
  - FEBRILE NEUTROPENIA [None]
  - PANCYTOPENIA [None]
  - FALL [None]
  - EPISTAXIS [None]
  - PERIORBITAL HAEMATOMA [None]
